FAERS Safety Report 7897451 (Version 3)
Quarter: 2014Q3

REPORT INFORMATION
  Report Type: Spontaneous
  Country: US (occurrence: US)
  Receive Date: 20110413
  Receipt Date: 20140911
  Transmission Date: 20150326
  Serious: Yes (Other)
  Sender: FDA-Public Use
  Company Number: US-ASTRAZENECA-2009UW11818

PATIENT
  Age: 72 Year
  Sex: Female

DRUGS (9)
  1. NEXIUM [Suspect]
     Active Substance: ESOMEPRAZOLE MAGNESIUM
     Route: 048
  2. IMDUR [Concomitant]
     Active Substance: ISOSORBIDE MONONITRATE
  3. TOPROL XL [Suspect]
     Active Substance: METOPROLOL SUCCINATE
     Route: 048
  4. CRESTOR [Suspect]
     Active Substance: ROSUVASTATIN CALCIUM
     Route: 048
  5. PLAVIX [Concomitant]
     Active Substance: CLOPIDOGREL BISULFATE
  6. GLUCOPHAGE [Concomitant]
     Active Substance: METFORMIN HYDROCHLORIDE
  7. PREVACID [Concomitant]
     Active Substance: LANSOPRAZOLE
  8. TRICO [Concomitant]
  9. METOPROLOL [Suspect]
     Active Substance: METOPROLOL
     Dosage: GENERIC, 50 MG TABS BID
     Route: 048

REACTIONS (6)
  - Angina pectoris [Unknown]
  - Pyrexia [Unknown]
  - Drug dose omission [Unknown]
  - Spinal fracture [Unknown]
  - Heart rate increased [Unknown]
  - Blood glucose increased [Unknown]
